APPROVED DRUG PRODUCT: VORICONAZOLE
Active Ingredient: VORICONAZOLE
Strength: 200MG
Dosage Form/Route: TABLET;ORAL
Application: A207049 | Product #002 | TE Code: AB
Applicant: EPIC PHARMA LLC
Approved: Sep 7, 2016 | RLD: No | RS: No | Type: RX